FAERS Safety Report 11651040 (Version 1)
Quarter: 2015Q4

REPORT INFORMATION
  Report Type: Spontaneous
  Country: US (occurrence: US)
  Receive Date: 20151021
  Receipt Date: 20151021
  Transmission Date: 20160304
  Serious: No
  Sender: FDA-Public Use
  Company Number: US-AMGEN-USASP2015108704

PATIENT
  Sex: Male

DRUGS (2)
  1. METHOTREXATE (METHOTREXATE SODIUM) [Suspect]
     Active Substance: METHOTREXATE SODIUM
     Indication: PRODUCT USED FOR UNKNOWN INDICATION
     Dosage: UNK
     Route: 065
  2. ENBREL [Suspect]
     Active Substance: ETANERCEPT
     Indication: PRODUCT USED FOR UNKNOWN INDICATION
     Dosage: 50 MG, ONCE WEEKLY
     Route: 065

REACTIONS (8)
  - Weight decreased [Unknown]
  - Tendon disorder [Unknown]
  - Spondylitis [Unknown]
  - Immune system disorder [Unknown]
  - Gait disturbance [Unknown]
  - Wheelchair user [Unknown]
  - Condition aggravated [Unknown]
  - Atrophy [Unknown]

NARRATIVE: CASE EVENT DATE: 2010
